FAERS Safety Report 18545846 (Version 1)
Quarter: 2020Q4

REPORT INFORMATION
  Report Type: Spontaneous
  Country: LV (occurrence: LV)
  Receive Date: 20201125
  Receipt Date: 20201125
  Transmission Date: 20210114
  Serious: Yes (Other)
  Sender: FDA-Public Use
  Company Number: LV-TEVA-2020-LV-1851667

PATIENT
  Age: 41 Year
  Sex: Female
  Weight: 100 kg

DRUGS (1)
  1. METFORMIN-RATIOPHARM 500 MG APVALKOTAS TABLETES [Suspect]
     Active Substance: METFORMIN HYDROCHLORIDE
     Indication: TYPE 2 DIABETES MELLITUS
     Dosage: THE DOSAGE OF DAY AND FREQUENCY WERE NOT REPORTED.
     Route: 048
     Dates: start: 20201010

REACTIONS (2)
  - Hypersensitivity [Recovering/Resolving]
  - Rash [Recovering/Resolving]

NARRATIVE: CASE EVENT DATE: 20201010
